FAERS Safety Report 4909701-X (Version None)
Quarter: 2006Q1

REPORT INFORMATION
  Report Type: 
  Country: None (occurrence: None)
  Receive Date: 20060208
  Receipt Date: 20060126
  Transmission Date: 20060701
  Serious: Yes (Other)
  Sender: FDA-Public Use
  Company Number: 2006013837

PATIENT
  Sex: Female

DRUGS (1)
  1. XALATAN [Suspect]
     Indication: ILL-DEFINED DISORDER
     Dosage: 2 DROP (1 DROP, 1 IN 1 D), OPHTHALMIC
     Route: 047

REACTIONS (6)
  - BLINDNESS UNILATERAL [None]
  - EYE PAIN [None]
  - OPTIC NERVE DISORDER [None]
  - RETINAL DISORDER [None]
  - RETINAL VEIN OCCLUSION [None]
  - SUICIDAL IDEATION [None]
